FAERS Safety Report 23224865 (Version 2)
Quarter: 2023Q4

REPORT INFORMATION
  Report Type: Report from Study
  Country: US (occurrence: US)
  Receive Date: 20231124
  Receipt Date: 20231129
  Transmission Date: 20240109
  Serious: Yes (Other)
  Sender: FDA-Public Use
  Company Number: US-JNJFOC-20231155700

PATIENT
  Age: 75 Year
  Sex: Female

DRUGS (1)
  1. STELARA [Suspect]
     Active Substance: USTEKINUMAB
     Indication: Colitis ulcerative
     Route: 040
     Dates: start: 20230802

REACTIONS (5)
  - Ileostomy [Unknown]
  - Generalised oedema [Unknown]
  - Peripheral swelling [Unknown]
  - Eczema weeping [Unknown]
  - Food allergy [Unknown]

NARRATIVE: CASE EVENT DATE: 20230101
